FAERS Safety Report 4559421-9 (Version None)
Quarter: 2005Q2

REPORT INFORMATION
  Report Type: 
  Country: None (occurrence: None)
  Receive Date: 20050120
  Receipt Date: 20050120
  Transmission Date: 20051028
  Serious: Yes (Hospitalization)
  Sender: FDA-Public Use
  Company Number: None

PATIENT
  Age: 59 Year
  Sex: Male

DRUGS (6)
  1. NAPROSYN [Suspect]
     Dosage: 500MG PO BID
     Route: 048
  2. APIPRAZOLE [Concomitant]
  3. FLEXERIL [Concomitant]
  4. ATORVASTATIN [Concomitant]
  5. DEPAKOTE [Concomitant]
  6. PLAVIX [Concomitant]

REACTIONS (2)
  - NEPHROPATHY [None]
  - RENAL FAILURE ACUTE [None]
